FAERS Safety Report 24034867 (Version 1)
Quarter: 2024Q2

REPORT INFORMATION
  Report Type: Spontaneous
  Country: US (occurrence: None)
  Receive Date: 20240628
  Receipt Date: 20240628
  Transmission Date: 20240715
  Serious: Yes (Other)
  Sender: FDA-Public Use
  Company Number: None

PATIENT
  Age: 23 Year
  Sex: Female
  Weight: 72.9 kg

DRUGS (2)
  1. MICONAZOLE [Suspect]
     Active Substance: MICONAZOLE
     Indication: Vulvovaginal pruritus
     Dates: start: 20240628, end: 20240628
  2. Multi vitamins [Concomitant]

REACTIONS (2)
  - Pain [None]
  - Pruritus [None]

NARRATIVE: CASE EVENT DATE: 20240628
